FAERS Safety Report 20429961 (Version 1)
Quarter: 2022Q1

REPORT INFORMATION
  Report Type: Report from Study
  Country: FR (occurrence: FR)
  Receive Date: 20220204
  Receipt Date: 20220204
  Transmission Date: 20220423
  Serious: Yes (Other)
  Sender: FDA-Public Use
  Company Number: FR-SERVIER-S19004226

PATIENT

DRUGS (9)
  1. PEGASPARGASE [Suspect]
     Active Substance: PEGASPARGASE
     Indication: Acute lymphocytic leukaemia
     Dosage: 3750 IU, QD ON D15
     Route: 042
     Dates: start: 20181030, end: 20181030
  2. PEGASPARGASE [Suspect]
     Active Substance: PEGASPARGASE
     Dosage: 1875 IU, QD ON D43
     Route: 042
     Dates: start: 20181217, end: 20181217
  3. TN UNSPECIFIED [Concomitant]
     Indication: Acute lymphocytic leukaemia
     Dosage: 2 MG DAILY, D15, D22, D43, D50
     Route: 042
     Dates: start: 20181030, end: 20181226
  4. TN UNSPECIFIED [Concomitant]
     Indication: Acute lymphocytic leukaemia
     Dosage: 1500 MG, QD, D1, D9
     Route: 042
     Dates: start: 20181016, end: 20181113
  5. TN UNSPECIFIED [Concomitant]
     Indication: Acute lymphocytic leukaemia
     Dosage: 115 MG, QD, D3 TO D6, D10 TO D13, D31 TO D34
     Route: 042
     Dates: start: 20181018, end: 20181213
  6. TN UNSPECIFIED [Concomitant]
     Dosage: 30 MG, QD, D3, D31
     Route: 037
     Dates: start: 20181016, end: 20181115
  7. TN UNSPECIFIED [Concomitant]
     Indication: Acute lymphocytic leukaemia
     Dosage: 90 MG, QD, D1 TO D14, D29 TO D42
     Route: 048
     Dates: start: 20181016, end: 20181214
  8. TN UNSPECIFIED [Concomitant]
     Indication: Acute lymphocytic leukaemia
     Dosage: 15 MG, QD, D3, D31
     Route: 037
     Dates: start: 20181016, end: 20181115
  9. TN UNSPECIFIED [Concomitant]
     Indication: Acute lymphocytic leukaemia
     Dosage: 15 MG, QD, D3, D31
     Route: 037
     Dates: start: 20181016, end: 20181115

REACTIONS (2)
  - Hepatic steatosis [Recovering/Resolving]
  - Hyperbilirubinaemia [Recovered/Resolved]

NARRATIVE: CASE EVENT DATE: 20181116
